FAERS Safety Report 10129633 (Version 1)
Quarter: 2014Q2

REPORT INFORMATION
  Report Type: Spontaneous
  Country: US (occurrence: None)
  Receive Date: 20140424
  Receipt Date: 20140424
  Transmission Date: 20141212
  Serious: Yes (Hospitalization)
  Sender: FDA-Public Use
  Company Number: None

PATIENT
  Age: 55 Year
  Sex: Male
  Weight: 83 kg

DRUGS (10)
  1. CISPLATIN [Suspect]
  2. VITAMIN E [Concomitant]
  3. GABAPENTIN [Concomitant]
  4. IBUPROFEN [Concomitant]
  5. LEVOFLOXACIN [Concomitant]
  6. PENTOXIFYLLINE [Concomitant]
  7. PERCOCET [Concomitant]
  8. SALIVA SUBSTITUTE [Concomitant]
  9. SENNA [Concomitant]
  10. ZOFRAN [Concomitant]

REACTIONS (2)
  - Pneumonia [None]
  - Pulmonary embolism [None]
